FAERS Safety Report 19277929 (Version 3)
Quarter: 2021Q2

REPORT INFORMATION
  Report Type: Other
  Country: CZ (occurrence: CZ)
  Receive Date: 20210520
  Receipt Date: 20210614
  Transmission Date: 20210717
  Serious: Yes (Death)
  Sender: FDA-Public Use
  Company Number: CZ-ROCHE-2832769

PATIENT
  Sex: Female

DRUGS (19)
  1. FULVESTRANT. [Suspect]
     Active Substance: FULVESTRANT
     Indication: BREAST CANCER
     Dosage: UNTIL DEC 2019
     Route: 065
     Dates: end: 201912
  2. LETROZOLE. [Suspect]
     Active Substance: LETROZOLE
     Indication: BREAST CANCER
     Dosage: 2.5 MG/DAY
     Route: 065
  3. GOSERELIN [Suspect]
     Active Substance: GOSERELIN
     Indication: BREAST CANCER
     Dosage: UNK
     Route: 065
     Dates: start: 201009
  4. FULVESTRANT. [Suspect]
     Active Substance: FULVESTRANT
     Indication: HORMONE THERAPY
  5. LETROZOLE. [Suspect]
     Active Substance: LETROZOLE
     Indication: HORMONE THERAPY
     Route: 065
  6. TRASTUZUMAB. [Suspect]
     Active Substance: TRASTUZUMAB
     Indication: BREAST CANCER
     Dosage: 8 MG/KG
     Route: 041
     Dates: start: 201503
  7. CYCLOPHOSPHAMIDE. [Suspect]
     Active Substance: CYCLOPHOSPHAMIDE
     Indication: BREAST CANCER
     Dosage: 1000 MG/M2, 4 CYCLES EVERY 21 DAYS?1000 MILLILITRE PER SQUARE METRE, Q3WK
     Route: 042
  8. PACLITAXEL. [Suspect]
     Active Substance: PACLITAXEL
     Indication: BREAST CANCER
     Dosage: 90 MILLILITRE PER SQUARE METRE, QWK
     Route: 065
  9. TRASTUZUMAB. [Suspect]
     Active Substance: TRASTUZUMAB
     Dosage: ANNUAL TRASTUZUMAB SCHEDULE UNTIL MAY 2011
     Route: 042
  10. DOCETAXEL. [Suspect]
     Active Substance: DOCETAXEL
     Dosage: 2 CYCLES,
     Route: 042
  11. TAMOXIFENE [Suspect]
     Active Substance: TAMOXIFEN
     Indication: BREAST CANCER
     Dosage: UNK
     Route: 065
     Dates: start: 201009
  12. TAMOXIFENE [Suspect]
     Active Substance: TAMOXIFEN
     Indication: HORMONE THERAPY
  13. HERCEPTIN [Suspect]
     Active Substance: TRASTUZUMAB
     Dosage: 6 MG/KG, EVERY 21 DAYS (YEARLY SCHEME UNTIL MAY/2011)
     Route: 042
     Dates: end: 201105
  14. HERCEPTIN [Suspect]
     Active Substance: TRASTUZUMAB
     Indication: BREAST CANCER METASTATIC
     Dosage: 8 MG/KG, (FROM THE SECOND ADMINISTRATION AT THE DOSE OF 6 MG/KG)
     Route: 042
     Dates: start: 201503
  15. PERTUZUMAB. [Suspect]
     Active Substance: PERTUZUMAB
     Indication: BREAST CANCER METASTATIC
     Dosage: UNK
     Route: 042
     Dates: start: 201503
  16. GOSERELIN [Suspect]
     Active Substance: GOSERELIN
     Indication: HORMONE THERAPY
  17. EPIRUBICIN [Suspect]
     Active Substance: EPIRUBICIN
     Indication: BREAST CANCER
     Dosage: 100 MG/M2, 4 CYCLES EVERY 21 DAYS?100 MILLILITRE PER SQUARE METRE, Q3WK (4 WEEKS)
     Route: 042
  18. DOCETAXEL. [Suspect]
     Active Substance: DOCETAXEL
     Indication: BREAST CANCER
     Dosage: 4 CYCLES
     Route: 042
  19. DOCETAXEL. [Suspect]
     Active Substance: DOCETAXEL
     Dosage: 6 CYCLES
     Route: 042
     Dates: start: 201503, end: 201507

REACTIONS (10)
  - Diarrhoea [Fatal]
  - Breast cancer [Fatal]
  - Asthenia [Fatal]
  - Haematotoxicity [Fatal]
  - Nail disorder [Fatal]
  - Disease recurrence [Fatal]
  - Fatigue [Fatal]
  - Disease progression [Fatal]
  - Neuropathy peripheral [Fatal]
  - Alopecia [Fatal]

NARRATIVE: CASE EVENT DATE: 2015
